FAERS Safety Report 24379605 (Version 1)
Quarter: 2024Q3

REPORT INFORMATION
  Report Type: Spontaneous
  Country: US (occurrence: None)
  Receive Date: 20240930
  Receipt Date: 20240930
  Transmission Date: 20241016
  Serious: No
  Sender: Public
  Company Number: None

PATIENT
  Sex: 0

DRUGS (1)
  1. IMATINIB [Suspect]
     Active Substance: IMATINIB

REACTIONS (7)
  - Adverse drug reaction [None]
  - Fatigue [None]
  - Brain fog [None]
  - Vomiting [None]
  - Decreased appetite [None]
  - Dehydration [None]
  - Dry skin [None]
